FAERS Safety Report 9186880 (Version 1)
Quarter: 2013Q1

REPORT INFORMATION
  Report Type: Spontaneous
  Country: US (occurrence: US)
  Receive Date: 20130325
  Receipt Date: 20130325
  Transmission Date: 20140127
  Serious: Yes (Death, Hospitalization)
  Sender: FDA-Public Use
  Company Number: US-GLAXOSMITHKLINE-A0998633A

PATIENT
  Age: 68 Year
  Sex: Male

DRUGS (13)
  1. ARIXTRA [Suspect]
     Indication: DEEP VEIN THROMBOSIS
     Dosage: 7.5MG PER DAY
     Route: 058
     Dates: start: 201209
  2. OMEPRAZOLE [Concomitant]
  3. DECADRON [Concomitant]
  4. ZOFRAN [Concomitant]
  5. COMPAZINE [Concomitant]
  6. ZYRTEC [Concomitant]
  7. REMERON [Concomitant]
  8. MULTIVITAMIN [Concomitant]
  9. MEGACE [Concomitant]
  10. ASPIRIN [Concomitant]
  11. METOPROLOL [Concomitant]
  12. POTASSIUM [Concomitant]
  13. MAGNESIUM [Concomitant]

REACTIONS (4)
  - Death [Fatal]
  - Pneumonia [Unknown]
  - Oesophageal cancer metastatic [Unknown]
  - Lung disorder [Unknown]
